FAERS Safety Report 5995710-9 (Version None)
Quarter: 2008Q4

REPORT INFORMATION
  Report Type: 
  Country: None (occurrence: None)
  Receive Date: 20081212
  Receipt Date: 20080625
  Transmission Date: 20090506
  Serious: No
  Sender: FDA-Public Use
  Company Number: US-AMGEN-KDL288283

PATIENT
  Sex: Female

DRUGS (7)
  1. ENBREL [Suspect]
     Indication: RHEUMATOID ARTHRITIS
     Route: 058
     Dates: start: 20080416
  2. METHOTREXATE [Concomitant]
     Route: 048
  3. ALLEGRA [Concomitant]
  4. LORAZEPAM [Concomitant]
  5. ALEVE [Concomitant]
  6. FOLIC ACID [Concomitant]
  7. CYMBALTA [Concomitant]

REACTIONS (2)
  - CHOLELITHIASIS [None]
  - HERNIA [None]
